FAERS Safety Report 6856059-5 (Version None)
Quarter: 2010Q3

REPORT INFORMATION
  Report Type: 
  Country: None (occurrence: None)
  Receive Date: 20100719
  Receipt Date: 20100714
  Transmission Date: 20110219
  Serious: Yes (Other)
  Sender: FDA-Public Use
  Company Number: US-BRISTOL-MYERS SQUIBB COMPANY-15175391

PATIENT
  Sex: Female

DRUGS (4)
  1. ERBITUX [Suspect]
     Indication: RECTAL CANCER
     Dosage: CYCLE 5 AND 7 WAS SKIPPED.
     Dates: start: 20100331
  2. OXALIPLATIN [Suspect]
  3. FLUOROURACIL [Suspect]
  4. VECTIBIX [Suspect]

REACTIONS (2)
  - PLATELET COUNT DECREASED [None]
  - RASH [None]
